FAERS Safety Report 18942253 (Version 4)
Quarter: 2021Q2

REPORT INFORMATION
  Report Type: Spontaneous
  Country: US (occurrence: US)
  Receive Date: 20210225
  Receipt Date: 20210519
  Transmission Date: 20210717
  Serious: Yes (Hospitalization, Other)
  Sender: FDA-Public Use
  Company Number: US-MALLINCKRODT-T202005735

PATIENT
  Age: 66 Year
  Sex: Female

DRUGS (2)
  1. H.P. ACTHAR [Suspect]
     Active Substance: CORTICOTROPIN
     Indication: GLOMERULONEPHRITIS MEMBRANOPROLIFERATIVE
     Dosage: 80 UNITS/1 MILLILITER, TWICE A WEEK
     Route: 058
     Dates: start: 202102, end: 202103
  2. H.P. ACTHAR [Suspect]
     Active Substance: CORTICOTROPIN
     Indication: NEPHROTIC SYNDROME
     Dosage: 1 MILLILITER (80 UNITS), TWICE A WEEK, AS DIRECTED
     Route: 058
     Dates: start: 202003

REACTIONS (7)
  - Pleural effusion [Unknown]
  - Infection [Unknown]
  - Blood glucose increased [Unknown]
  - Aspiration pleural cavity [Unknown]
  - COVID-19 [Recovering/Resolving]
  - Fluid retention [Unknown]
  - Swelling [Not Recovered/Not Resolved]

NARRATIVE: CASE EVENT DATE: 20201130
